FAERS Safety Report 10694413 (Version 5)
Quarter: 2015Q2

REPORT INFORMATION
  Report Type: Spontaneous
  Country: US (occurrence: US)
  Receive Date: 20150107
  Receipt Date: 20150521
  Transmission Date: 20150821
  Serious: Yes (Hospitalization)
  Sender: FDA-Public Use
  Company Number: US-PFIZER INC-2015001307

PATIENT
  Age: 80 Year
  Sex: Male
  Weight: 69 kg

DRUGS (4)
  1. REVATIO [Suspect]
     Active Substance: SILDENAFIL CITRATE
     Indication: DYSPNOEA
  2. KLOR-CON [Concomitant]
     Active Substance: POTASSIUM CHLORIDE
     Dosage: 20 ^MG^, UNK
     Dates: start: 201409
  3. REVATIO [Suspect]
     Active Substance: SILDENAFIL CITRATE
     Indication: HYPERTENSION
     Dosage: 20 MG, 3X/DAY
     Dates: start: 201410
  4. FAMOTIDINE. [Concomitant]
     Active Substance: FAMOTIDINE
     Dosage: 20 MG, UNK
     Dates: start: 20141110

REACTIONS (4)
  - Syncope [Recovered/Resolved]
  - Product use issue [Not Recovered/Not Resolved]
  - Fall [Recovered/Resolved]
  - Hearing impaired [Unknown]

NARRATIVE: CASE EVENT DATE: 201410
